FAERS Safety Report 10191700 (Version 1)
Quarter: 2014Q2

REPORT INFORMATION
  Report Type: Spontaneous
  Country: US (occurrence: None)
  Receive Date: 20140522
  Receipt Date: 20140522
  Transmission Date: 20141212
  Serious: Yes (Other)
  Sender: FDA-Public Use
  Company Number: None

PATIENT
  Age: 84 Year
  Sex: Male
  Weight: 81.2 kg

DRUGS (11)
  1. REQUIP [Suspect]
     Indication: PARKINSON^S DISEASE
     Dosage: 1 TABLET, TID, ORAL
     Route: 048
     Dates: start: 20130628, end: 20131105
  2. SINEMET [Concomitant]
  3. CHLORTHALIDONE [Concomitant]
  4. LISINOPRIL [Concomitant]
  5. SPIRONOLACTONE [Concomitant]
  6. VITAMIN D [Concomitant]
  7. B12 [Concomitant]
  8. PRAVASTATIN [Concomitant]
  9. FLOMAX [Concomitant]
  10. FINASTERIDE [Concomitant]
  11. ASPIRIN [Concomitant]

REACTIONS (3)
  - Cardiac failure congestive [None]
  - Squamous cell carcinoma of skin [None]
  - Skin cancer [None]
